FAERS Safety Report 20524657 (Version 2)
Quarter: 2022Q1

REPORT INFORMATION
  Report Type: Spontaneous
  Country: IN (occurrence: IN)
  Receive Date: 20220228
  Receipt Date: 20220302
  Transmission Date: 20220423
  Serious: Yes (Hospitalization, Other)
  Sender: FDA-Public Use
  Company Number: IN-NOVARTISPH-NVSC2022IN042678

PATIENT
  Age: 68 Year
  Sex: Male
  Weight: 76 kg

DRUGS (3)
  1. NEPAFENAC [Suspect]
     Active Substance: NEPAFENAC
     Indication: Procedural pain
     Dosage: 4 T/D
     Route: 061
     Dates: start: 20220128, end: 20220131
  2. MOXIFLOXACIN [Concomitant]
     Active Substance: MOXIFLOXACIN
     Indication: Product used for unknown indication
     Dosage: 6 T/D
     Route: 065
  3. DEXAMETHASONE [Concomitant]
     Active Substance: DEXAMETHASONE
     Indication: Product used for unknown indication
     Dosage: 6 T/D
     Route: 065

REACTIONS (7)
  - Visual impairment [Recovered/Resolved with Sequelae]
  - Uveitis [Unknown]
  - Ocular hyperaemia [Unknown]
  - Eye pain [Unknown]
  - Hypersensitivity [Unknown]
  - Eye oedema [Unknown]
  - Swelling of eyelid [Unknown]

NARRATIVE: CASE EVENT DATE: 20220128
